FAERS Safety Report 4818404-1 (Version None)
Quarter: 2005Q4

REPORT INFORMATION
  Report Type: 
  Country: None (occurrence: None)
  Receive Date: 20051102
  Receipt Date: 20050817
  Transmission Date: 20060501
  Serious: Yes (Hospitalization)
  Sender: FDA-Public Use
  Company Number: JP-BRACCO-BRO-009023

PATIENT
  Sex: Male
  Weight: 72 kg

DRUGS (3)
  1. IOPAMIRON [Suspect]
     Dosage: 3.0 ML/SEC
     Route: 042
     Dates: start: 20050810, end: 20050810
  2. IOPAMIRON [Suspect]
     Dosage: 3.0 ML/SEC
     Route: 042
     Dates: start: 20050810, end: 20050810
  3. URSODIOL [Concomitant]
     Route: 048

REACTIONS (12)
  - BLOOD PRESSURE DECREASED [None]
  - BLOOD PRESSURE IMMEASURABLE [None]
  - BLOOD PRESSURE INCREASED [None]
  - CARDIO-RESPIRATORY ARREST [None]
  - DEMENTIA [None]
  - DEPRESSED LEVEL OF CONSCIOUSNESS [None]
  - DISEASE PROGRESSION [None]
  - DYSPNOEA [None]
  - FOAMING AT MOUTH [None]
  - HEPATIC FUNCTION ABNORMAL [None]
  - LOSS OF CONSCIOUSNESS [None]
  - SHOCK [None]
